FAERS Safety Report 6148898-3 (Version None)
Quarter: 2009Q2

REPORT INFORMATION
  Report Type: 
  Country: None (occurrence: None)
  Receive Date: 20090408
  Receipt Date: 20090326
  Transmission Date: 20091009
  Serious: Yes (Hospitalization)
  Sender: FDA-Public Use
  Company Number: JP-ABBOTT-09P-087-0566799-00

PATIENT
  Sex: Male

DRUGS (4)
  1. LEUPLIN SR FOR INJECTION 11.25 MG [Suspect]
     Indication: PROSTATE CANCER STAGE II
     Route: 058
     Dates: start: 20070115
  2. LEUPLIN SR FOR INJECTION 11.25 MG [Suspect]
     Dates: start: 20061120, end: 20061218
  3. VESICARE [Concomitant]
     Indication: POLLAKIURIA
     Route: 048
     Dates: start: 20080110, end: 20080214
  4. TAMSULOSIN HYDROCHLORIDE [Concomitant]
     Indication: DYSURIA
     Route: 048
     Dates: start: 20081017

REACTIONS (3)
  - BILE DUCT CANCER [None]
  - COLON CANCER [None]
  - METASTASES TO LIVER [None]
